FAERS Safety Report 20933207 (Version 1)
Quarter: 2022Q2

REPORT INFORMATION
  Report Type: Spontaneous
  Country: NL (occurrence: NL)
  Receive Date: 20220608
  Receipt Date: 20220608
  Transmission Date: 20220721
  Serious: Yes (Other)
  Sender: FDA-Public Use
  Company Number: NL-TEVA-2022-NL-2038891

PATIENT
  Age: 71 Year
  Sex: Female
  Weight: 50 kg

DRUGS (12)
  1. PREDNISONE [Suspect]
     Active Substance: PREDNISONE
     Indication: Product used for unknown indication
     Dosage: UNK
  2. LEFLUNOMIDE [Suspect]
     Active Substance: LEFLUNOMIDE
     Indication: Rheumatoid arthritis
     Dosage: 10 MILLIGRAM, QD (10 MILLIGRAM DAILY)
     Dates: end: 2021
  3. METHOTREXATE [Suspect]
     Active Substance: METHOTREXATE
     Indication: Rheumatoid arthritis
     Dosage: 2.5 MILLIGRAM (10 MG PER WEEK)
  4. PLAQUENIL [Concomitant]
     Active Substance: HYDROXYCHLOROQUINE SULFATE
     Dosage: 200 MILLIGRAM, QD (200 MILLIGRAM DAILY)
  5. PLAQUENIL [Concomitant]
     Active Substance: HYDROXYCHLOROQUINE SULFATE
     Dosage: 400 MILLIGRAM, QD (400 MILLIGRAM DAILY)
  6. FOLIC ACID [Concomitant]
     Active Substance: FOLIC ACID
     Dosage: 2 DOSAGE FORM
  7. EUTHYROX [Concomitant]
     Active Substance: LEVOTHYROXINE SODIUM
     Dosage: 1 DOSAGE FORM
  8. METHOTREXATE [Concomitant]
     Active Substance: METHOTREXATE
     Dosage: 7.5 MILLIGRAM, QW
  9. VITAMIN D [Concomitant]
     Active Substance: VITAMIN D NOS
     Dosage: 800 INTERNATIONAL UNIT
  10. ACLASTA [Concomitant]
     Active Substance: ZOLEDRONIC ACID
     Dosage: 1 DOSAGE FORM, QY
  11. BIOTIN [Concomitant]
     Active Substance: BIOTIN
     Dosage: 2.5 MILLIGRAM, QD (2.5 MILLIGRAM DAILY IN THE AFTERNOON)
  12. VITAMIN B12 [Concomitant]
     Active Substance: CYANOCOBALAMIN
     Dosage: UNK

REACTIONS (5)
  - Spinal compression fracture [Recovered/Resolved with Sequelae]
  - Back disorder [Not Recovered/Not Resolved]
  - Rash [Recovered/Resolved]
  - Product prescribing error [Unknown]
  - Insomnia [Recovered/Resolved]

NARRATIVE: CASE EVENT DATE: 20210101
